FAERS Safety Report 23660566 (Version 1)
Quarter: 2024Q1

REPORT INFORMATION
  Report Type: Spontaneous
  Country: US (occurrence: US)
  Receive Date: 20240322
  Receipt Date: 20240322
  Transmission Date: 20240410
  Serious: Yes (Hospitalization, Other)
  Sender: FDA-Public Use
  Company Number: US-GLAXOSMITHKLINE-US2024034336

PATIENT

DRUGS (3)
  1. ANORO ELLIPTA [Suspect]
     Active Substance: UMECLIDINIUM BROMIDE\VILANTEROL TRIFENATATE
     Indication: Chronic obstructive pulmonary disease
     Dosage: 1 PUFF(S), QD, 62.5-25MCG
     Route: 055
     Dates: start: 2023
  2. ANORO ELLIPTA [Suspect]
     Active Substance: UMECLIDINIUM BROMIDE\VILANTEROL TRIFENATATE
     Indication: Bronchospasm
  3. ELIQUIS [Concomitant]
     Active Substance: APIXABAN
     Indication: Anticoagulant therapy
     Dosage: 5 MG, BID (BY MOUTH IN MORNING AND AT NIGHT)
     Dates: start: 2022

REACTIONS (4)
  - Myocardial infarction [Recovering/Resolving]
  - Cerebrovascular accident [Recovering/Resolving]
  - Cardiac pacemaker insertion [Recovering/Resolving]
  - Illness [Unknown]
